FAERS Safety Report 5033336-4 (Version None)
Quarter: 2006Q2

REPORT INFORMATION
  Report Type: 
  Country: None (occurrence: None)
  Receive Date: 20060623
  Receipt Date: 20060616
  Transmission Date: 20061013
  Serious: Yes (Death, Hospitalization)
  Sender: FDA-Public Use
  Company Number: 2006UW12937

PATIENT
  Age: 22087 Day
  Sex: Female

DRUGS (13)
  1. IRESSA [Suspect]
     Indication: NON-SMALL CELL LUNG CANCER
     Route: 048
     Dates: start: 20060214, end: 20060417
  2. DOCETAXEL [Suspect]
     Indication: NON-SMALL CELL LUNG CANCER
     Route: 042
     Dates: start: 20060214, end: 20060328
  3. RADIOTHERAPY [Suspect]
     Indication: NON-SMALL CELL LUNG CANCER
  4. ZOLOFT [Concomitant]
  5. DEXAMETHASONE TAB [Concomitant]
  6. FLONASE [Concomitant]
  7. ATROVENT [Concomitant]
  8. IMODIUM [Concomitant]
  9. PRILOSEC [Concomitant]
  10. CARAFATE [Concomitant]
  11. SUDAFED [Concomitant]
  12. BENADRYL [Concomitant]
  13. MEGACE [Concomitant]

REACTIONS (7)
  - FATIGUE [None]
  - GENERAL PHYSICAL HEALTH DETERIORATION [None]
  - HYPOXIA [None]
  - INTERNATIONAL NORMALISED RATIO INCREASED [None]
  - INTERSTITIAL LUNG DISEASE [None]
  - PERFORMANCE STATUS DECREASED [None]
  - PULMONARY EMBOLISM [None]
